FAERS Safety Report 15793158 (Version 1)
Quarter: 2019Q1

REPORT INFORMATION
  Report Type: Spontaneous
  Country: US (occurrence: US)
  Receive Date: 20190107
  Receipt Date: 20190107
  Transmission Date: 20190417
  Serious: Yes (Other)
  Sender: FDA-Public Use
  Company Number: US-TORRENT-00007369

PATIENT
  Age: 73 Year
  Weight: 79 kg

DRUGS (4)
  1. TOPAMAX [Concomitant]
     Active Substance: TOPIRAMATE
     Indication: MIGRAINE
     Dosage: 25 MG AT NIGHT
  2. LOSARTAN. [Suspect]
     Active Substance: LOSARTAN
     Indication: HYPERTENSION
     Dosage: 100 MG ONCE A DAY
     Dates: start: 2017, end: 201707
  3. FENOFIBRATE. [Concomitant]
     Active Substance: FENOFIBRATE
     Indication: BLOOD CHOLESTEROL
     Dosage: 160 MG ONCE A DAY
  4. OMEPRAZOLE. [Concomitant]
     Active Substance: OMEPRAZOLE
     Indication: GASTROOESOPHAGEAL REFLUX DISEASE
     Dosage: 40MG ONCE A DAY

REACTIONS (5)
  - Dizziness [Unknown]
  - Abdominal discomfort [Unknown]
  - Lung neoplasm malignant [Unknown]
  - Wrong technique in product usage process [Unknown]
  - Drug intolerance [Unknown]

NARRATIVE: CASE EVENT DATE: 2017
